FAERS Safety Report 7630013-8 (Version None)
Quarter: 2011Q3

REPORT INFORMATION
  Report Type: 
  Country: None (occurrence: None)
  Receive Date: 20110722
  Receipt Date: 20110720
  Transmission Date: 20111222
  Serious: Yes (Other)
  Sender: FDA-Public Use
  Company Number: US-PFIZER INC-2011133307

PATIENT
  Sex: Male

DRUGS (7)
  1. PROVENTIL GENTLEHALER [Concomitant]
     Indication: CHRONIC OBSTRUCTIVE PULMONARY DISEASE
     Dosage: UNK
  2. PROVENTIL GENTLEHALER [Concomitant]
     Indication: ASTHMA
  3. SYMBICORT [Concomitant]
     Indication: ASTHMA
     Dosage: UNK
  4. CHANTIX [Suspect]
     Indication: NICOTINE DEPENDENCE
  5. PROLASTIN [Concomitant]
     Indication: ALPHA-1 ANTI-TRYPSIN DEFICIENCY
     Dosage: UNK
     Route: 042
  6. CHANTIX [Suspect]
     Indication: SMOKING CESSATION THERAPY
     Dosage: UNK
     Route: 048
     Dates: start: 20110601, end: 20110101
  7. CRESTOR [Concomitant]
     Indication: BLOOD CHOLESTEROL ABNORMAL
     Dosage: 40 MG, 1X/DAY
     Dates: start: 20030101

REACTIONS (5)
  - WITHDRAWAL SYNDROME [None]
  - PALPITATIONS [None]
  - OROPHARYNGEAL BLISTERING [None]
  - DYSPNOEA [None]
  - MUSCLE SPASMS [None]
